FAERS Safety Report 13759302 (Version 14)
Quarter: 2022Q4

REPORT INFORMATION
  Report Type: Report from Study
  Country: DE (occurrence: DE)
  Receive Date: 20170717
  Receipt Date: 20221003
  Transmission Date: 20230113
  Serious: Yes (Hospitalization, Other)
  Sender: FDA-Public Use
  Company Number: PHHY2016DE115328

PATIENT
  Age: 2 Year
  Sex: Male
  Weight: 12.2 kg

DRUGS (62)
  1. GLIVEC [Suspect]
     Active Substance: IMATINIB MESYLATE
     Indication: Acute lymphocytic leukaemia
     Dosage: 150 MG, QD
     Route: 048
     Dates: start: 20150921, end: 20170307
  2. GLIVEC [Suspect]
     Active Substance: IMATINIB MESYLATE
     Indication: Systemic scleroderma
  3. GLIVEC [Suspect]
     Active Substance: IMATINIB MESYLATE
     Indication: Philadelphia chromosome positive
  4. METHOTREXATE [Suspect]
     Active Substance: METHOTREXATE
     Indication: Acute lymphocytic leukaemia
     Dosage: 2700 MG, QD
     Route: 042
     Dates: start: 20151218, end: 20151219
  5. METHOTREXATE [Suspect]
     Active Substance: METHOTREXATE
     Indication: Philadelphia chromosome positive
     Dosage: 2600 MG, QD (1 APPLICATION ABOUT 24 HOURS)
     Route: 042
     Dates: start: 20160114, end: 20160115
  6. METHOTREXATE [Suspect]
     Active Substance: METHOTREXATE
     Dosage: REGULARY APPLICATION VIA THERAPY ELEMENT HR3
     Route: 037
     Dates: start: 20160208
  7. METHOTREXATE [Suspect]
     Active Substance: METHOTREXATE
     Dosage: UNK
     Route: 048
     Dates: start: 20160913
  8. ETOPOSIDE [Suspect]
     Active Substance: ETOPOSIDE
     Indication: Acute lymphocytic leukaemia
     Dosage: 52 MG, UNK (5 APPLICATIONS TO 52 MG
     Route: 042
     Dates: start: 20160206, end: 20160208
  9. ETOPOSIDE [Suspect]
     Active Substance: ETOPOSIDE
     Indication: Philadelphia chromosome positive
  10. DOXORUBICIN [Suspect]
     Active Substance: DOXORUBICIN
     Indication: Acute lymphocytic leukaemia
     Dosage: 13.5 MG, UNK
     Route: 042
     Dates: start: 20160303
  11. DOXORUBICIN [Suspect]
     Active Substance: DOXORUBICIN
     Indication: Philadelphia chromosome positive
     Dosage: 13.5 MG, UNK
     Route: 042
     Dates: start: 20160310
  12. DOXORUBICIN [Suspect]
     Active Substance: DOXORUBICIN
     Dosage: 13.5 MG, UNK
     Route: 042
     Dates: start: 20160324
  13. DOXORUBICIN [Suspect]
     Active Substance: DOXORUBICIN
     Dosage: 13.5 MG, UNK
     Route: 042
     Dates: start: 20160620
  14. DOXORUBICIN [Suspect]
     Active Substance: DOXORUBICIN
     Dosage: 13.5 MG, UNK
     Route: 042
     Dates: start: 20160627
  15. DOXORUBICIN [Suspect]
     Active Substance: DOXORUBICIN
     Dosage: 13.5 MG, UNK
     Route: 042
     Dates: start: 20160704
  16. DOXORUBICIN [Suspect]
     Active Substance: DOXORUBICIN
     Dosage: 13.5 MG, UNK
     Route: 042
     Dates: start: 20160712
  17. DOXORUBICIN [Suspect]
     Active Substance: DOXORUBICIN
     Dosage: 13.5 MG, UNK
     Route: 042
  18. CYCLOPHOSPHAMIDE [Suspect]
     Active Substance: CYCLOPHOSPHAMIDE
     Indication: Acute lymphocytic leukaemia
     Dosage: 550 MG, QD
     Route: 042
     Dates: start: 20151017, end: 20151017
  19. CYCLOPHOSPHAMIDE [Suspect]
     Active Substance: CYCLOPHOSPHAMIDE
     Indication: Philadelphia chromosome positive
     Dosage: 550 MG, QD
     Route: 042
     Dates: start: 20151203, end: 20151203
  20. CYCLOPHOSPHAMIDE [Suspect]
     Active Substance: CYCLOPHOSPHAMIDE
     Dosage: 110 MG, UNK (5 APPLICATIONS TO 110 MG)
     Route: 042
     Dates: start: 20151219, end: 20151221
  21. CYCLOPHOSPHAMIDE [Suspect]
     Active Substance: CYCLOPHOSPHAMIDE
     Dosage: 560 MG, UNK
     Route: 042
     Dates: start: 20160416, end: 20160416
  22. CYCLOPHOSPHAMIDE [Suspect]
     Active Substance: CYCLOPHOSPHAMIDE
     Dosage: 550 MG, UNK
     Route: 042
     Dates: start: 20160730, end: 20160730
  23. CYTARABINE [Suspect]
     Active Substance: CYTARABINE
     Indication: Acute lymphocytic leukaemia
     Dosage: 41 MG, QD
     Route: 042
     Dates: start: 20151019, end: 20151222
  24. CYTARABINE [Suspect]
     Active Substance: CYTARABINE
     Indication: Philadelphia chromosome positive
     Dosage: 41 MG, QD
     Route: 042
     Dates: start: 20151026, end: 20151029
  25. CYTARABINE [Suspect]
     Active Substance: CYTARABINE
     Dosage: 41 MG, QD
     Route: 042
     Dates: start: 20151102, end: 20151105
  26. CYTARABINE [Suspect]
     Active Substance: CYTARABINE
     Dosage: 41 MG, QD
     Route: 042
     Dates: start: 20151109, end: 20151112
  27. CYTARABINE [Suspect]
     Active Substance: CYTARABINE
     Dosage: 2160 MG, QD
     Route: 042
     Dates: start: 20151221
  28. CYTARABINE [Suspect]
     Active Substance: CYTARABINE
     Dosage: 1040 MG, UNK (4 APPLICATIONS TO 1040 MG)
     Route: 042
     Dates: start: 20160204, end: 20160206
  29. CYTARABINE [Suspect]
     Active Substance: CYTARABINE
     Dosage: 42 MG, UNK
     Route: 042
  30. CYTARABINE [Suspect]
     Active Substance: CYTARABINE
     Dosage: 42 MG, UNK
     Route: 042
  31. CYTARABINE [Suspect]
     Active Substance: CYTARABINE
     Dosage: UNK
     Route: 065
     Dates: end: 20160811
  32. CYTARABINE [Suspect]
     Active Substance: CYTARABINE
     Dosage: UNK
     Route: 037
     Dates: start: 20160208, end: 20160208
  33. VINCRISTINE [Suspect]
     Active Substance: VINCRISTINE
     Indication: Acute lymphocytic leukaemia
     Dosage: 0.8 MG, ONCE/SINGLE
     Route: 042
     Dates: start: 20151218
  34. VINCRISTINE [Suspect]
     Active Substance: VINCRISTINE
     Indication: Philadelphia chromosome positive
     Dosage: 0.8 MG, ONCE/SINGLE
     Route: 042
     Dates: start: 20151223, end: 20151223
  35. VINCRISTINE [Suspect]
     Active Substance: VINCRISTINE
     Dosage: 0.8 MG, ONCE/SINGLE
     Route: 042
     Dates: start: 20160119, end: 20160119
  36. VINCRISTINE [Suspect]
     Active Substance: VINCRISTINE
     Dosage: 0.8 MG, ONCE/SINGLE
     Route: 042
     Dates: start: 20160303, end: 20160303
  37. VINCRISTINE [Suspect]
     Active Substance: VINCRISTINE
     Dosage: 0.8 MG, ONCE/SINGLE
     Route: 042
     Dates: start: 20160310
  38. VINCRISTINE [Suspect]
     Active Substance: VINCRISTINE
     Dosage: 0.8 MG, ONCE/SINGLE
     Route: 042
     Dates: start: 20160317
  39. VINCRISTINE [Suspect]
     Active Substance: VINCRISTINE
     Dosage: 0.8 MG, ONCE/SINGLE
     Route: 042
     Dates: start: 20160324
  40. VINCRISTINE [Suspect]
     Active Substance: VINCRISTINE
     Dosage: 0.8 MG, ONCE/SINGLE
     Route: 042
     Dates: start: 20160620
  41. VINCRISTINE [Suspect]
     Active Substance: VINCRISTINE
     Dosage: 0.8 MG, ONCE/SINGLE
     Route: 042
     Dates: start: 20160627
  42. VINCRISTINE [Suspect]
     Active Substance: VINCRISTINE
     Dosage: 0.8 MG, ONCE/SINGLE
     Route: 042
     Dates: start: 20160704
  43. VINCRISTINE [Suspect]
     Active Substance: VINCRISTINE
     Dosage: 0.8 MG, ONCE/SINGLE
     Route: 042
     Dates: start: 20160712, end: 20160712
  44. VINDESINE [Suspect]
     Active Substance: VINDESINE
     Indication: Acute lymphocytic leukaemia
     Dosage: 1.6 MG, UNK
     Route: 042
     Dates: start: 20160114
  45. VINDESINE [Suspect]
     Active Substance: VINDESINE
     Indication: Philadelphia chromosome positive
     Dosage: 1.6 MG, UNK
     Route: 042
     Dates: start: 20160119, end: 20160119
  46. ASPARAGINASE [Suspect]
     Active Substance: ASPARAGINASE
     Indication: Acute lymphocytic leukaemia
     Dosage: 13500 IU, QD
     Route: 042
     Dates: start: 20151223, end: 20151223
  47. ASPARAGINASE [Suspect]
     Active Substance: ASPARAGINASE
     Indication: Philadelphia chromosome positive
     Dosage: 13000 IU, QD
     Route: 042
     Dates: start: 20160209, end: 20160209
  48. ASPARAGINASE [Suspect]
     Active Substance: ASPARAGINASE
     Dosage: 1300 IU, QD
     Route: 042
     Dates: start: 20160303
  49. ASPARAGINASE [Suspect]
     Active Substance: ASPARAGINASE
     Dosage: 5400 IU, UNK
     Route: 042
     Dates: start: 20160306
  50. ASPARAGINASE [Suspect]
     Active Substance: ASPARAGINASE
     Dosage: 5400 IU, UNK
     Route: 042
     Dates: start: 20160310
  51. ASPARAGINASE [Suspect]
     Active Substance: ASPARAGINASE
     Dosage: 5400 IU, UNK
     Route: 042
     Dates: start: 20160313
  52. ASPARAGINASE [Suspect]
     Active Substance: ASPARAGINASE
     Dosage: 5400 IU, UNK
     Route: 042
     Dates: start: 20160620
  53. ASPARAGINASE [Suspect]
     Active Substance: ASPARAGINASE
     Dosage: 5400 IU, UNK
     Route: 042
     Dates: start: 20160627
  54. ASPARAGINASE [Suspect]
     Active Substance: ASPARAGINASE
     Dosage: 5400 IU, UNK
     Route: 042
     Dates: start: 20160630
  55. ASPARAGINASE [Suspect]
     Active Substance: ASPARAGINASE
     Dosage: 5400 IU, UNK
     Route: 042
  56. ASPARAGINASE [Suspect]
     Active Substance: ASPARAGINASE
     Dosage: 5400 IU, UNK
     Route: 042
  57. ASPARAGINASE [Suspect]
     Active Substance: ASPARAGINASE
     Dosage: 5400 IU, UNK
     Route: 042
  58. IFOSFAMIDE [Suspect]
     Active Substance: IFOSFAMIDE
     Indication: Acute lymphocytic leukaemia
     Dosage: 416 MG, QD
     Route: 042
     Dates: start: 20160115, end: 20160117
  59. IFOSFAMIDE [Suspect]
     Active Substance: IFOSFAMIDE
     Indication: Philadelphia chromosome positive
  60. DAUNORUBICIN [Suspect]
     Active Substance: DAUNORUBICIN
     Indication: Acute lymphocytic leukaemia
     Dosage: 16 MG, QD
     Route: 042
     Dates: start: 20160118, end: 20160119
  61. DAUNORUBICIN [Suspect]
     Active Substance: DAUNORUBICIN
     Indication: Philadelphia chromosome positive
  62. MERCAPTOPURINE [Suspect]
     Active Substance: MERCAPTOPURINE
     Indication: Product used for unknown indication
     Dosage: UNK
     Route: 048
     Dates: start: 20160913

REACTIONS (22)
  - Febrile neutropenia [Recovered/Resolved]
  - Febrile neutropenia [Recovered/Resolved]
  - Febrile neutropenia [Recovered/Resolved]
  - Febrile neutropenia [Recovered/Resolved]
  - Febrile neutropenia [Recovered/Resolved]
  - Febrile neutropenia [Recovered/Resolved]
  - Febrile neutropenia [Recovered/Resolved]
  - Neutropenia [Recovered/Resolved]
  - Neutropenia [Recovered/Resolved]
  - Neutropenia [Recovered/Resolved]
  - Neutropenia [Recovered/Resolved]
  - Hypoxia [Recovered/Resolved]
  - Upper respiratory tract infection [Recovered/Resolved]
  - Pyrexia [Recovered/Resolved]
  - Hypoxia [Recovered/Resolved]
  - Neutropenia [Recovered/Resolved]
  - Urinary tract infection [Unknown]
  - Large intestine infection [Unknown]
  - Stomatitis [Unknown]
  - Muscular weakness [Unknown]
  - Pruritus [Unknown]
  - Lymphopenia [Unknown]

NARRATIVE: CASE EVENT DATE: 20151110
